FAERS Safety Report 18321513 (Version 1)
Quarter: 2020Q3

REPORT INFORMATION
  Report Type: Spontaneous
  Country: CN (occurrence: CN)
  Receive Date: 20200928
  Receipt Date: 20200928
  Transmission Date: 20201103
  Serious: Yes (Other)
  Sender: FDA-Public Use
  Company Number: CN-PFIZER INC-2020368970

PATIENT

DRUGS (1)
  1. XALKORI [Suspect]
     Active Substance: CRIZOTINIB
     Route: 048

REACTIONS (1)
  - Renal impairment [Unknown]
